FAERS Safety Report 11786695 (Version 1)
Quarter: 2015Q4

REPORT INFORMATION
  Report Type: Spontaneous
  Country: US (occurrence: US)
  Receive Date: 20151130
  Receipt Date: 20151130
  Transmission Date: 20160305
  Serious: No
  Sender: FDA-Public Use
  Company Number: US-ASTRAZENECA-2015SF12587

PATIENT
  Age: 64 Year
  Sex: Female

DRUGS (1)
  1. IRESSA [Suspect]
     Active Substance: GEFITINIB
     Indication: LUNG NEOPLASM MALIGNANT
     Dosage: DOSE UNKNOWN
     Route: 048

REACTIONS (3)
  - Gait disturbance [Unknown]
  - Activities of daily living impaired [Unknown]
  - Confusional state [Unknown]
